FAERS Safety Report 9026674 (Version 1)
Quarter: 2013Q1

REPORT INFORMATION
  Report Type: Spontaneous
  Country: US (occurrence: US)
  Receive Date: 20130123
  Receipt Date: 20130123
  Transmission Date: 20140127
  Serious: Yes (Hospitalization, Other)
  Sender: FDA-Public Use
  Company Number: US-ELI_LILLY_AND_COMPANY-US201301004311

PATIENT
  Sex: Female

DRUGS (3)
  1. CYMBALTA [Suspect]
     Indication: PAIN
     Dosage: 60 MG, UNKNOWN
  2. CYMBALTA [Suspect]
     Dosage: 90 MG, UNKNOWN
  3. PAXIL [Concomitant]
     Dosage: UNK, UNKNOWN

REACTIONS (3)
  - Panic attack [Unknown]
  - Hypertension [Unknown]
  - Urticaria [Unknown]
